FAERS Safety Report 4350108-4 (Version None)
Quarter: 2004Q2

REPORT INFORMATION
  Report Type: 
  Country: None (occurrence: None)
  Receive Date: 20040429
  Receipt Date: 20040419
  Transmission Date: 20050107
  Serious: Yes (Hospitalization)
  Sender: FDA-Public Use
  Company Number: FR-GLAXOSMITHKLINE-B0330518A

PATIENT
  Age: 51 Year
  Sex: Female

DRUGS (8)
  1. ZYBAN [Suspect]
     Indication: EX-SMOKER
     Dosage: 150MG SEE DOSAGE TEXT
     Route: 048
     Dates: start: 20040315, end: 20040328
  2. MEPRONIZINE [Concomitant]
     Route: 065
  3. AVLOCARDYL [Concomitant]
     Route: 065
  4. TRANXENE [Concomitant]
     Route: 065
  5. TRIMEPRAZINE TAB [Concomitant]
     Route: 065
  6. LOXAPAC [Concomitant]
     Route: 065
  7. LEVOTHYROXINE SODIUM [Concomitant]
     Route: 065
  8. DIHYDAN [Concomitant]
     Route: 065

REACTIONS (3)
  - DEPRESSED LEVEL OF CONSCIOUSNESS [None]
  - GRAND MAL CONVULSION [None]
  - MALAISE [None]
